FAERS Safety Report 10303670 (Version 2)
Quarter: 2014Q3

REPORT INFORMATION
  Report Type: Spontaneous
  Country: US (occurrence: US)
  Receive Date: 20140714
  Receipt Date: 20140714
  Transmission Date: 20150326
  Serious: Yes (Hospitalization)
  Sender: FDA-Public Use
  Company Number: US-GILEAD-2013-0081942

PATIENT
  Age: 78 Year
  Sex: Male

DRUGS (2)
  1. LETAIRIS [Suspect]
     Active Substance: AMBRISENTAN
     Indication: PULMONARY HYPERTENSION
     Dosage: 10 MG, QD
     Dates: start: 20130725, end: 20130806
  2. LETAIRIS [Suspect]
     Active Substance: AMBRISENTAN
     Indication: LEFT VENTRICULAR DYSFUNCTION

REACTIONS (3)
  - Fluid retention [Unknown]
  - Oedema [Unknown]
  - Peripheral swelling [Unknown]

NARRATIVE: CASE EVENT DATE: 20130806
